FAERS Safety Report 16658798 (Version 1)
Quarter: 2019Q3

REPORT INFORMATION
  Report Type: Spontaneous
  Country: DE (occurrence: DE)
  Receive Date: 20190801
  Receipt Date: 20190801
  Transmission Date: 20191004
  Serious: Yes (Hospitalization, Other)
  Sender: FDA-Public Use
  Company Number: DE-BAUSCH-BL-2019-021591

PATIENT
  Age: 73 Year
  Sex: Female

DRUGS (8)
  1. RANITIC [Concomitant]
     Active Substance: RANITIDINE HYDROCHLORIDE
     Indication: PRODUCT USED FOR UNKNOWN INDICATION
     Dosage: 0-0-1
     Route: 048
  2. DEXAMETHASONE. [Suspect]
     Active Substance: DEXAMETHASONE
     Dosage: 1-0-0
     Route: 048
     Dates: end: 20190526
  3. DEXAMETHASONE. [Suspect]
     Active Substance: DEXAMETHASONE
     Dosage: 1-0-0
     Route: 048
     Dates: start: 20190610, end: 20190614
  4. DEXAMETHASONE. [Suspect]
     Active Substance: DEXAMETHASONE
     Dosage: 1-0-0
     Route: 048
     Dates: start: 20190530, end: 20190602
  5. DEXAMETHASONE. [Suspect]
     Active Substance: DEXAMETHASONE
     Dosage: 1-0-0
     Route: 048
     Dates: start: 20190607, end: 20190609
  6. DEXAMETHASONE. [Suspect]
     Active Substance: DEXAMETHASONE
     Dosage: 1-0-0
     Route: 048
     Dates: start: 20190526, end: 20190529
  7. TOREM [Concomitant]
     Active Substance: TORSEMIDE
     Indication: PRODUCT USED FOR UNKNOWN INDICATION
     Dosage: 1-0-0, DOSE WAS INCREASED BECAUSE OF THE EDEMA, AND THEN REDUCED AGAIN
     Route: 048
  8. DEXAMETHASONE. [Suspect]
     Active Substance: DEXAMETHASONE
     Indication: VESTIBULAR NEURONITIS
     Dosage: 1-0-0
     Route: 048
     Dates: start: 20190603, end: 20190606

REACTIONS (8)
  - Overdose [Unknown]
  - Abdominal pain upper [Recovered/Resolved]
  - Blood sodium abnormal [Recovered/Resolved]
  - Asthenia [Recovered/Resolved]
  - Hypokalaemia [Recovered/Resolved]
  - Wrong product administered [Unknown]
  - Muscular weakness [Recovered/Resolved]
  - Oedema [Recovered/Resolved]

NARRATIVE: CASE EVENT DATE: 20190621
